FAERS Safety Report 15125670 (Version 1)
Quarter: 2018Q3

REPORT INFORMATION
  Report Type: Spontaneous
  Country: NL (occurrence: NL)
  Receive Date: 20180710
  Receipt Date: 20180710
  Transmission Date: 20181010
  Serious: Yes (Life-Threatening, Hospitalization)
  Sender: FDA-Public Use
  Company Number: NL-PFIZER INC-2018273639

PATIENT
  Age: 24 Year
  Sex: Female
  Weight: 87.7 kg

DRUGS (2)
  1. IBUPROFEN. [Suspect]
     Active Substance: IBUPROFEN
     Indication: EXOSTOSIS
     Dosage: 400 MG, 1X/DAY
     Route: 048
     Dates: start: 20180528, end: 20180529
  2. DICLOFENAC /00372302/ [Suspect]
     Active Substance: DICLOFENAC
     Indication: EXOSTOSIS
     Dosage: 50 MG, SINGLE
     Route: 050
     Dates: start: 20180531

REACTIONS (1)
  - Thrombotic thrombocytopenic purpura [Recovering/Resolving]

NARRATIVE: CASE EVENT DATE: 20180602
